FAERS Safety Report 24107886 (Version 3)
Quarter: 2024Q3

REPORT INFORMATION
  Report Type: Spontaneous
  Country: US (occurrence: US)
  Receive Date: 20240718
  Receipt Date: 20240906
  Transmission Date: 20241017
  Serious: Yes (Hospitalization)
  Sender: DOMPE FARMACEUTICI
  Company Number: US-FARMAPROD-202308-202405-1931

PATIENT
  Sex: Male

DRUGS (11)
  1. OXERVATE [Suspect]
     Active Substance: CENEGERMIN-BKBJ
     Indication: Neurotrophic keratopathy
     Route: 047
     Dates: start: 20240516
  2. OXERVATE [Suspect]
     Active Substance: CENEGERMIN-BKBJ
  3. OXERVATE [Suspect]
     Active Substance: CENEGERMIN-BKBJ
  4. OXERVATE [Suspect]
     Active Substance: CENEGERMIN-BKBJ
  5. CARVEDILOL [Concomitant]
     Active Substance: CARVEDILOL
  6. CLOPIDOGREL [Concomitant]
     Active Substance: CLOPIDOGREL BISULFATE
  7. ATORVASTATIN CALCIUM [Concomitant]
     Active Substance: ATORVASTATIN CALCIUM
  8. KLOR-CON M10 [Concomitant]
     Active Substance: POTASSIUM CHLORIDE
  9. MULTIVITAMIN 50 PLUS [Concomitant]
  10. RESTASIS [Concomitant]
     Active Substance: CYCLOSPORINE
  11. LENALIDOMIDE [Concomitant]
     Active Substance: LENALIDOMIDE

REACTIONS (3)
  - Hospitalisation [Unknown]
  - Malaise [Unknown]
  - Therapy interrupted [Unknown]
